FAERS Safety Report 8163162-9 (Version None)
Quarter: 2012Q1

REPORT INFORMATION
  Report Type: 
  Country: None (occurrence: None)
  Receive Date: 20120224
  Receipt Date: 20110317
  Transmission Date: 20120608
  Serious: No
  Sender: FDA-Public Use
  Company Number: US-PFIZER INC-K201100295

PATIENT
  Age: 68 Year
  Sex: Female
  Weight: 72.562 kg

DRUGS (10)
  1. CLONIDINE [Concomitant]
     Dosage: UNK
  2. COREG [Concomitant]
     Dosage: UNK
  3. RENVELA [Concomitant]
     Dosage: UNK
  4. FLECTOR [Suspect]
     Indication: ARTHRITIS
     Dosage: UNK
     Route: 061
     Dates: start: 20110201, end: 20110301
  5. DIOVAN [Concomitant]
     Dosage: UNK
  6. VITAMIN D [Concomitant]
     Dosage: UNK
  7. XANAX [Concomitant]
     Dosage: UNK
  8. COD LIVER OIL [Concomitant]
     Dosage: UNK
  9. HYDRALAZINE [Concomitant]
     Dosage: UNK
  10. FISH OIL [Concomitant]
     Dosage: UNK

REACTIONS (4)
  - DECREASED APPETITE [None]
  - SWELLING [None]
  - PYREXIA [None]
  - HAEMATOCHEZIA [None]
